FAERS Safety Report 10329666 (Version 1)
Quarter: 2014Q3

REPORT INFORMATION
  Report Type: Spontaneous
  Country: US (occurrence: US)
  Receive Date: 20140721
  Receipt Date: 20140721
  Transmission Date: 20150326
  Serious: Yes (Hospitalization, Other)
  Sender: FDA-Public Use
  Company Number: US-ELI_LILLY_AND_COMPANY-US201407004596

PATIENT
  Age: 63 Year
  Sex: Male

DRUGS (3)
  1. PLAVIX [Concomitant]
     Active Substance: CLOPIDOGREL BISULFATE
     Dosage: UNK
  2. HUMULIN 70/30 [Suspect]
     Active Substance: INSULIN HUMAN
     Indication: DIABETES MELLITUS
     Dosage: 20 U, BID
     Route: 065
  3. ASPIRIN. [Concomitant]
     Active Substance: ASPIRIN

REACTIONS (13)
  - Blood glucose fluctuation [Unknown]
  - Neck pain [Unknown]
  - Visual acuity reduced [Unknown]
  - Coronary artery occlusion [Unknown]
  - Myocardial infarction [Unknown]
  - Dizziness [Unknown]
  - Cataract [Unknown]
  - Vision blurred [Unknown]
  - Blood glucose increased [Unknown]
  - Loss of consciousness [Unknown]
  - Back pain [Unknown]
  - Cardiac failure congestive [Unknown]
  - Fall [Unknown]

NARRATIVE: CASE EVENT DATE: 2012
